FAERS Safety Report 15226166 (Version 3)
Quarter: 2018Q4

REPORT INFORMATION
  Report Type: Spontaneous
  Country: US (occurrence: US)
  Receive Date: 20180801
  Receipt Date: 20181009
  Transmission Date: 20190204
  Serious: No
  Sender: FDA-Public Use
  Company Number: US-GLAXOSMITHKLINE-US2018131926

PATIENT
  Sex: Female

DRUGS (1)
  1. ALLI [Suspect]
     Active Substance: ORLISTAT
     Indication: WEIGHT LOSS DIET
     Dosage: UNK

REACTIONS (6)
  - Treatment noncompliance [Unknown]
  - Adverse drug reaction [Unknown]
  - Product complaint [Unknown]
  - Drug ineffective [Unknown]
  - Intentional product misuse [Unknown]
  - Intentional overdose [Unknown]
